FAERS Safety Report 16901291 (Version 1)
Quarter: 2019Q4

REPORT INFORMATION
  Report Type: Spontaneous
  Country: US (occurrence: US)
  Receive Date: 20191009
  Receipt Date: 20191009
  Transmission Date: 20200122
  Serious: No
  Sender: FDA-Public Use
  Company Number: US-TEVA-2019-US-1118681

PATIENT
  Sex: Male

DRUGS (1)
  1. CLONAZEPAM TEVA [Suspect]
     Active Substance: CLONAZEPAM
     Dosage: 1 MG
     Route: 048

REACTIONS (5)
  - Euphoric mood [Unknown]
  - Somnolence [Unknown]
  - Dizziness [Unknown]
  - Chest discomfort [Unknown]
  - Chest pain [Unknown]
